FAERS Safety Report 8424469-0 (Version None)
Quarter: 2012Q2

REPORT INFORMATION
  Report Type: 
  Country: None (occurrence: None)
  Receive Date: 20120610
  Receipt Date: 20100111
  Transmission Date: 20120825
  Serious: Yes (Death, Hospitalization)
  Sender: FDA-Public Use
  Company Number: PHHY2012AU011549

PATIENT
  Sex: Female

DRUGS (15)
  1. CARVEDILOL [Concomitant]
     Dosage: 6.25 MG, IN THE MORNING
     Route: 048
  2. IMODIUM [Concomitant]
     Dosage: 2 MG, PRN, DAILY IN THE MORNING
     Route: 048
  3. TEMAZEPAM [Concomitant]
     Dosage: 10 MG, PRN AT NIGHT
     Route: 048
  4. NASONEX [Concomitant]
     Dosage: 50 UG, 1 SPRAY AT BED TIME
  5. NITROLINGUAL [Concomitant]
     Dosage: 400 UG, PRN
     Route: 060
  6. SIMVASTATIN [Concomitant]
     Dosage: 20 MG, IN THE NIGHT
     Route: 048
  7. KALTOSTAT [Concomitant]
     Dosage: UNK UKN, UNK
  8. FUROSEMIDE [Concomitant]
     Dosage: 40 MG, IN THE MORNING
     Route: 048
  9. ACETAMINOPHEN [Concomitant]
     Dosage: 665 MG, PRN, AT BED TIME
     Route: 048
  10. IMDUR [Concomitant]
     Dosage: 60 MG, 1/2 TABLET IN THE MORNING
     Route: 048
  11. NEXIUM [Concomitant]
     Dosage: 20 MG, DAILY
     Route: 048
  12. ZOLEDRONOC ACID [Suspect]
     Dosage: 5 MG, UNK
     Route: 042
     Dates: start: 20090123
  13. ZOLOFT [Concomitant]
     Dosage: 100 MG, DAILY
     Route: 048
  14. ASPIRIN [Concomitant]
     Dosage: 100 MG, IN THE MORNING
     Route: 048
  15. CALCIFEROL [Concomitant]
     Dosage: 1000 U,IN THE MORNING
     Route: 048

REACTIONS (3)
  - CARDIAC DISORDER [None]
  - MALAISE [None]
  - CHEST PAIN [None]
